FAERS Safety Report 25670864 (Version 1)
Quarter: 2025Q3

REPORT INFORMATION
  Report Type: Report from Study
  Country: US (occurrence: US)
  Receive Date: 20250812
  Receipt Date: 20250812
  Transmission Date: 20251020
  Serious: Yes (Other)
  Sender: ABBVIE
  Company Number: US-ABBVIE-6405502

PATIENT
  Sex: Female

DRUGS (1)
  1. HUMIRA [Suspect]
     Active Substance: ADALIMUMAB
     Indication: Uveitis
     Route: 058

REACTIONS (10)
  - Systemic lupus erythematosus [Unknown]
  - Gait disturbance [Unknown]
  - Pain in extremity [Unknown]
  - Arthritis [Unknown]
  - Uveitis [Unknown]
  - Brain neoplasm [Unknown]
  - Malignant melanoma [Unknown]
  - Cognitive disorder [Unknown]
  - Amnesia [Unknown]
  - Arthralgia [Unknown]
